FAERS Safety Report 13558724 (Version 1)
Quarter: 2017Q2

REPORT INFORMATION
  Report Type: Spontaneous
  Country: IT (occurrence: IT)
  Receive Date: 20170518
  Receipt Date: 20170518
  Transmission Date: 20170830
  Serious: Yes (Other)
  Sender: FDA-Public Use
  Company Number: PHHY2017IT072004

PATIENT
  Age: 28 Year
  Sex: Female

DRUGS (1)
  1. TAFINLAR [Suspect]
     Active Substance: DABRAFENIB MESYLATE
     Indication: MALIGNANT MELANOMA
     Dosage: 2 DF, QD
     Route: 048

REACTIONS (2)
  - Erythema [Unknown]
  - Pain [Unknown]

NARRATIVE: CASE EVENT DATE: 20170429
